FAERS Safety Report 6666449-1 (Version None)
Quarter: 2010Q2

REPORT INFORMATION
  Report Type: 
  Country: None (occurrence: None)
  Receive Date: 20100402
  Receipt Date: 20100329
  Transmission Date: 20101027
  Serious: Yes (Death, Hospitalization, Other)
  Sender: FDA-Public Use
  Company Number: IN-ELI_LILLY_AND_COMPANY-IN201003008551

PATIENT
  Age: 59 Year
  Sex: Male

DRUGS (4)
  1. XIGRIS [Suspect]
     Indication: MULTI-ORGAN DISORDER
     Dosage: UNK, UNKNOWN
     Route: 042
     Dates: start: 20100326, end: 20100329
  2. EPINEPHRINE [Concomitant]
     Dosage: UNK, UNKNOWN
     Route: 065
  3. DOBUTAMINE [Concomitant]
     Dosage: UNK, UNKNOWN
     Route: 065
  4. DOPAMINE HCL [Concomitant]
     Dosage: UNK, UNKNOWN
     Route: 065

REACTIONS (3)
  - BLOOD CREATININE INCREASED [None]
  - CARDIAC ARREST [None]
  - POST PROCEDURAL HAEMORRHAGE [None]
